FAERS Safety Report 7437422-0 (Version None)
Quarter: 2011Q2

REPORT INFORMATION
  Report Type: 
  Country: None (occurrence: None)
  Receive Date: 20110426
  Receipt Date: 20100525
  Transmission Date: 20111010
  Serious: No
  Sender: FDA-Public Use
  Company Number: US-PFIZER INC-2010066420

PATIENT
  Sex: Female
  Weight: 54 kg

DRUGS (1)
  1. ESTRING [Suspect]
     Indication: MENOPAUSAL SYMPTOMS
     Dosage: 2 MG, UNK
     Dates: start: 20100517, end: 20100519

REACTIONS (4)
  - VULVOVAGINAL DISCOMFORT [None]
  - FEELING ABNORMAL [None]
  - IRRITABILITY [None]
  - VULVOVAGINAL BURNING SENSATION [None]
